FAERS Safety Report 5145600-9 (Version None)
Quarter: 2006Q4

REPORT INFORMATION
  Report Type: 
  Country: None (occurrence: None)
  Receive Date: 20061101
  Receipt Date: 20061027
  Transmission Date: 20070319
  Serious: Yes (Death, Other)
  Sender: FDA-Public Use
  Company Number: US-2006-031706

PATIENT

DRUGS (1)
  1. FLUDARA [Suspect]
     Indication: LYMPHOMA
     Dosage: 2 MONTHS

REACTIONS (2)
  - ACUTE MYELOID LEUKAEMIA [None]
  - LEUKAEMIA [None]
